FAERS Safety Report 7650400-1 (Version None)
Quarter: 2011Q3

REPORT INFORMATION
  Report Type: 
  Country: None (occurrence: None)
  Receive Date: 20110802
  Receipt Date: 20110720
  Transmission Date: 20111222
  Serious: Yes (Hospitalization, Disabling)
  Sender: FDA-Public Use
  Company Number: US-GLAXOSMITHKLINE-A0637692A

PATIENT
  Age: 58 Year
  Sex: Male
  Weight: 114.5 kg

DRUGS (1)
  1. AVANDIA [Suspect]
     Indication: TYPE 2 DIABETES MELLITUS
     Route: 048

REACTIONS (7)
  - VISUAL ACUITY TESTS ABNORMAL [None]
  - MACULAR OEDEMA [None]
  - CORONARY ARTERY DISEASE [None]
  - ATRIOVENTRICULAR BLOCK FIRST DEGREE [None]
  - VISUAL ACUITY REDUCED [None]
  - VISION BLURRED [None]
  - BLINDNESS [None]
